FAERS Safety Report 18354645 (Version 2)
Quarter: 2020Q4

REPORT INFORMATION
  Report Type: Report from Study
  Country: US (occurrence: US)
  Receive Date: 20201007
  Receipt Date: 20201014
  Transmission Date: 20210114
  Serious: Yes (Hospitalization)
  Sender: FDA-Public Use
  Company Number: US-BAYER-2020-212204

PATIENT
  Age: 62 Year
  Sex: Female
  Weight: 60.77 kg

DRUGS (3)
  1. SILDENAFIL CITRATE. [Concomitant]
     Active Substance: SILDENAFIL CITRATE
  2. REMODULIN [Suspect]
     Active Substance: TREPROSTINIL
     Dosage: UNK
     Dates: end: 202007
  3. ADEMPAS [Suspect]
     Active Substance: RIOCIGUAT
     Indication: PULMONARY ARTERIAL HYPERTENSION
     Dosage: 0.5 MG, TID
     Route: 048
     Dates: start: 20200828

REACTIONS (5)
  - Gallbladder operation [None]
  - Headache [None]
  - Vomiting [None]
  - Nausea [None]
  - Gallbladder disorder [None]

NARRATIVE: CASE EVENT DATE: 20200928
